FAERS Safety Report 5590702-6 (Version None)
Quarter: 2008Q1

REPORT INFORMATION
  Report Type: 
  Country: None (occurrence: None)
  Receive Date: 20080114
  Receipt Date: 20080102
  Transmission Date: 20080703
  Serious: Yes (Other)
  Sender: FDA-Public Use
  Company Number: US-PFIZER INC-2007093311

PATIENT
  Sex: Female
  Weight: 80.7 kg

DRUGS (5)
  1. LYRICA [Suspect]
     Indication: FIBROMYALGIA
     Route: 048
     Dates: start: 20071021, end: 20071105
  2. ADVAIR DISKUS 100/50 [Concomitant]
     Indication: ASTHMA
  3. SYNTHROID [Concomitant]
     Indication: HYPOTHYROIDISM
     Route: 048
  4. FLUOXETINE [Concomitant]
     Indication: DEPRESSION
     Route: 048
  5. LISINOPRIL [Concomitant]
     Indication: HYPERTENSION
     Route: 048

REACTIONS (13)
  - DIARRHOEA [None]
  - DRUG INEFFECTIVE [None]
  - DYSARTHRIA [None]
  - DYSKINESIA [None]
  - FATIGUE [None]
  - GAIT DISTURBANCE [None]
  - HYPERREFLEXIA [None]
  - HYPERTENSION [None]
  - MUSCLE SPASMS [None]
  - PAIN [None]
  - POOR QUALITY SLEEP [None]
  - PRESSURE OF SPEECH [None]
  - TREMOR [None]
